FAERS Safety Report 24054610 (Version 4)
Quarter: 2025Q1

REPORT INFORMATION
  Report Type: Report from Study
  Country: CA (occurrence: CA)
  Receive Date: 20240705
  Receipt Date: 20250110
  Transmission Date: 20250408
  Serious: Yes (Other)
  Sender: GLAXOSMITHKLINE
  Company Number: CA-GLAXOSMITHKLINE-CA2023082293

PATIENT

DRUGS (3)
  1. MEPOLIZUMAB [Suspect]
     Active Substance: MEPOLIZUMAB
     Indication: Asthma
     Dosage: 100 MG, Q4W
     Route: 058
     Dates: start: 20221028
  2. SYMBICORT [Concomitant]
     Active Substance: BUDESONIDE\FORMOTEROL FUMARATE DIHYDRATE
     Indication: Product used for unknown indication
     Dosage: QD (6-8 PUFFS A DAY)
  3. SPIRIVA [Concomitant]
     Active Substance: TIOTROPIUM BROMIDE MONOHYDRATE
     Indication: Product used for unknown indication
     Dosage: 2 PUFF(S), QD

REACTIONS (17)
  - Knee arthroplasty [Unknown]
  - Dyspnoea [Unknown]
  - Cough [Unknown]
  - Wheezing [Unknown]
  - Arthralgia [Unknown]
  - SARS-CoV-2 test positive [Unknown]
  - Diarrhoea [Unknown]
  - Headache [Unknown]
  - Oropharyngeal pain [Unknown]
  - Neck pain [Unknown]
  - Illness [Not Recovered/Not Resolved]
  - Insomnia [Unknown]
  - Decreased appetite [Unknown]
  - Anosmia [Unknown]
  - Secretion discharge [Not Recovered/Not Resolved]
  - Dysphonia [Unknown]
  - Nasopharyngitis [Unknown]

NARRATIVE: CASE EVENT DATE: 20230905
